FAERS Safety Report 7053949-8 (Version None)
Quarter: 2010Q4

REPORT INFORMATION
  Report Type: 
  Country: None (occurrence: None)
  Receive Date: 20101014
  Receipt Date: 20100929
  Transmission Date: 20110411
  Serious: Yes (Hospitalization)
  Sender: FDA-Public Use
  Company Number: DAV-AE-ATE-10-001

PATIENT
  Age: 57 Year
  Sex: Female

DRUGS (11)
  1. ATENOLOL [Suspect]
     Indication: HYPERTENSION
     Dosage: 100 MG/DAY
     Dates: start: 20070309, end: 20070422
  2. TACROLIMUS [Concomitant]
  3. MYCOPHENOLATE MOFETIL [Concomitant]
  4. STEROIDS [Concomitant]
  5. METHYLPREDNISOLONE [Concomitant]
  6. SULFAMETHOXAZOLE [Concomitant]
  7. ASPIRIN [Concomitant]
  8. URSODIOL [Concomitant]
  9. VALGANCICLOVIR HCL [Concomitant]
  10. ESOMEPRAZOLE [Concomitant]
  11. PREDNISONE [Concomitant]

REACTIONS (5)
  - CHOLESTASIS [None]
  - HEPATIC FAILURE [None]
  - HEPATIC NECROSIS [None]
  - HEPATOTOXICITY [None]
  - LIVER TRANSPLANT REJECTION [None]
